FAERS Safety Report 8967677 (Version 1)
Quarter: 2012Q4

REPORT INFORMATION
  Report Type: Spontaneous
  Country: KR (occurrence: None)
  Receive Date: 20121207
  Receipt Date: 20121207
  Transmission Date: 20130627
  Serious: Yes (Other)
  Sender: FDA-Public Use
  Company Number: DSA_58338_2012

PATIENT

DRUGS (4)
  1. FLUOROURACIL (FLUOROURACIL) [Suspect]
     Indication: METASTATIC GASTRIC CANCER
  2. FLUOROURACIL (FLUOROURACIL) [Suspect]
     Indication: METASTATIC GASTRIC CANCER
  3. IRINOTECAN [Suspect]
     Indication: METASTATIC GASTRIC CANCER
  4. LEUCOVORIN [Suspect]
     Indication: METASTATIC GASTRIC CANCER

REACTIONS (2)
  - Nausea [None]
  - Vomiting [None]
